FAERS Safety Report 24343778 (Version 1)
Quarter: 2024Q3

REPORT INFORMATION
  Report Type: Spontaneous
  Country: US (occurrence: None)
  Receive Date: 20240920
  Receipt Date: 20240920
  Transmission Date: 20241017
  Serious: Yes (Hospitalization)
  Sender: Public
  Company Number: None

PATIENT
  Age: 70 Year
  Sex: Female

DRUGS (2)
  1. PROLIA [Suspect]
     Active Substance: DENOSUMAB
     Indication: Osteoporosis
     Dosage: OTHER FREQUENCY : Q6MO;?
     Route: 058
     Dates: start: 20220118
  2. PROCRIT INJ [Concomitant]

REACTIONS (2)
  - Fall [None]
  - Spinal fracture [None]

NARRATIVE: CASE EVENT DATE: 20240910
